FAERS Safety Report 4624278-4 (Version None)
Quarter: 2005Q1

REPORT INFORMATION
  Report Type: 
  Country: None (occurrence: None)
  Receive Date: 20050330
  Receipt Date: 20050330
  Transmission Date: 20050727
  Serious: Yes (Death)
  Sender: FDA-Public Use
  Company Number: None

PATIENT
  Age: 36 Year
  Sex: Male

DRUGS (6)
  1. NEURONTIN [Suspect]
     Indication: MULTIPLE SCLEROSIS
     Dosage: 2400MG DAILY
     Dates: start: 20010401, end: 20020301
  2. CELEXA [Concomitant]
  3. LORAZEPAM [Concomitant]
  4. BUSPAR [Concomitant]
  5. FLOMAX [Concomitant]
  6. LORCET-HD [Concomitant]

REACTIONS (2)
  - COMPLETED SUICIDE [None]
  - GUN SHOT WOUND [None]
